FAERS Safety Report 12316626 (Version 1)
Quarter: 2016Q2

REPORT INFORMATION
  Report Type: Spontaneous
  Country: US (occurrence: US)
  Receive Date: 20160429
  Receipt Date: 20160429
  Transmission Date: 20160815
  Serious: Yes (Life-Threatening, Hospitalization)
  Sender: FDA-Public Use
  Company Number: US-HOSPIRA-3263333

PATIENT
  Age: 8 Year
  Sex: Male

DRUGS (4)
  1. IRINOTECAN HYDROCHLORIDE. [Suspect]
     Active Substance: IRINOTECAN HYDROCHLORIDE
     Indication: METASTATIC NEOPLASM
     Dosage: THERAPY DAY 1 AND DAY 2
  2. VINCRISTINE SULFATE. [Suspect]
     Active Substance: VINCRISTINE SULFATE
     Indication: ALVEOLAR RHABDOMYOSARCOMA
     Dosage: THERAPY DAY 1
  3. IRINOTECAN HYDROCHLORIDE. [Suspect]
     Active Substance: IRINOTECAN HYDROCHLORIDE
     Indication: ALVEOLAR RHABDOMYOSARCOMA
     Dosage: THERAPY DAY 1 AND DAY 2
  4. VINCRISTINE SULFATE. [Suspect]
     Active Substance: VINCRISTINE SULFATE
     Indication: METASTATIC NEOPLASM
     Dosage: THERAPY DAY 1

REACTIONS (4)
  - Acute pulmonary oedema [Recovered/Resolved]
  - Tumour lysis syndrome [Recovered/Resolved]
  - Ventricular fibrillation [Recovered/Resolved]
  - Respiratory failure [Recovered/Resolved]
